FAERS Safety Report 16868991 (Version 1)
Quarter: 2019Q3

REPORT INFORMATION
  Report Type: Spontaneous
  Country: US (occurrence: US)
  Receive Date: 20190930
  Receipt Date: 20190930
  Transmission Date: 20191005
  Serious: No
  Sender: FDA-Public Use
  Company Number: US-BAUSCH-BL-2019-024288

PATIENT
  Age: 69 Year
  Sex: Female

DRUGS (1)
  1. ARESTIN [Suspect]
     Active Substance: MINOCYCLINE HYDROCHLORIDE
     Indication: PERIODONTAL OPERATION
     Dosage: SUBGINGIVAL ADMINISTRATION
     Route: 050
     Dates: start: 20190813, end: 201908

REACTIONS (6)
  - Abdominal discomfort [Recovering/Resolving]
  - Oropharyngeal pain [Not Recovered/Not Resolved]
  - Noninfective gingivitis [Recovering/Resolving]
  - Fatigue [Recovering/Resolving]
  - Malaise [Recovering/Resolving]
  - Drug hypersensitivity [Unknown]

NARRATIVE: CASE EVENT DATE: 201908
